FAERS Safety Report 20923385 (Version 1)
Quarter: 2022Q2

REPORT INFORMATION
  Report Type: Spontaneous
  Country: US (occurrence: US)
  Receive Date: 20220607
  Receipt Date: 20220607
  Transmission Date: 20220721
  Serious: Yes (Hospitalization, Other)
  Sender: FDA-Public Use
  Company Number: US-MLMSERVICE-20220518-3564918-1

PATIENT
  Age: 64 Year
  Sex: Male

DRUGS (2)
  1. DIVALPROEX SODIUM [Suspect]
     Active Substance: DIVALPROEX SODIUM
     Indication: Aggression
     Dosage: 3 GRAM, ONCE A DAY (INCREASED TO 3GM/DAY)
     Route: 065
     Dates: end: 2020
  2. SEROQUEL [Concomitant]
     Active Substance: QUETIAPINE FUMARATE
     Indication: Product used for unknown indication
     Dosage: 150 MILLIGRAM, ONCE A DAY (TITRATED TO 150MG/DAY)
     Route: 065

REACTIONS (3)
  - Toxicity to various agents [Recovering/Resolving]
  - Encephalopathy [Recovering/Resolving]
  - Condition aggravated [Recovering/Resolving]
